FAERS Safety Report 7644742-3 (Version None)
Quarter: 2011Q3

REPORT INFORMATION
  Report Type: 
  Country: None (occurrence: None)
  Receive Date: 20110729
  Receipt Date: 20110713
  Transmission Date: 20111222
  Serious: Yes (Other)
  Sender: FDA-Public Use
  Company Number: US-VALEANT-2011VX002086

PATIENT
  Sex: Female

DRUGS (2)
  1. MYSOLINE [Suspect]
     Route: 064
     Dates: start: 19560101
  2. DILANTIN [Suspect]
     Route: 064
     Dates: start: 19480101

REACTIONS (2)
  - PREMATURE BABY [None]
  - MATERNAL DRUGS AFFECTING FOETUS [None]
